FAERS Safety Report 8624766-X (Version None)
Quarter: 2012Q3

REPORT INFORMATION
  Report Type: 
  Country: None (occurrence: None)
  Receive Date: 20120827
  Receipt Date: 20120816
  Transmission Date: 20120928
  Serious: Yes (Hospitalization, Other)
  Sender: FDA-Public Use
  Company Number: GB-JNJFOC-20120513869

PATIENT
  Sex: Male
  Weight: 63 kg

DRUGS (12)
  1. IBUPROFEN [Suspect]
     Indication: PAIN
     Route: 048
     Dates: end: 20120508
  2. ARANESP [Concomitant]
     Indication: ANAEMIA
     Route: 058
     Dates: start: 20120329, end: 20120509
  3. IBUPROFEN [Suspect]
     Route: 048
  4. ACETAMINOPHEN [Concomitant]
     Indication: PAIN
     Dosage: IN THE MORNING
     Route: 065
  5. METHADONE HCL [Concomitant]
     Indication: DEPENDENCE
     Route: 065
  6. MIRTAZAPINE [Concomitant]
     Indication: DEPRESSION
     Route: 065
  7. INCIVEK [Suspect]
     Indication: HEPATITIS C
     Route: 048
     Dates: start: 20120226, end: 20120509
  8. FLUTICASONE PROPIONATE/SALMETEROL [Concomitant]
     Indication: CHRONIC OBSTRUCTIVE PULMONARY DISEASE
     Route: 055
  9. RIBAVIRIN [Concomitant]
     Indication: HEPATITIS C
     Route: 065
     Dates: start: 20120115, end: 20120509
  10. PEGINTERFERON ALFA-2B [Concomitant]
     Indication: HEPATITIS C
     Route: 058
     Dates: start: 20120115, end: 20120509
  11. ALBUTEROL SULATE [Concomitant]
     Indication: CHRONIC OBSTRUCTIVE PULMONARY DISEASE
     Dosage: PM
     Route: 055
  12. TIOTROPIUM [Concomitant]
     Indication: CHRONIC OBSTRUCTIVE PULMONARY DISEASE
     Dosage: IN THE MORNING
     Route: 055

REACTIONS (15)
  - RENAL IMPAIRMENT [None]
  - GLOMERULAR FILTRATION RATE DECREASED [None]
  - WHITE BLOOD CELL COUNT INCREASED [None]
  - URINARY TRACT INFECTION [None]
  - BLOOD UREA INCREASED [None]
  - DYSURIA [None]
  - BLOOD CREATININE INCREASED [None]
  - LOWER RESPIRATORY TRACT INFECTION [None]
  - FLANK PAIN [None]
  - ANAEMIA [None]
  - ESCHERICHIA TEST POSITIVE [None]
  - NEUTROPHIL COUNT INCREASED [None]
  - POLLAKIURIA [None]
  - HAEMOGLOBIN DECREASED [None]
  - C-REACTIVE PROTEIN INCREASED [None]
